FAERS Safety Report 21715209 (Version 1)
Quarter: 2022Q4

REPORT INFORMATION
  Report Type: Report from Study
  Country: JP (occurrence: JP)
  Receive Date: 20221212
  Receipt Date: 20221212
  Transmission Date: 20230113
  Serious: Yes (Hospitalization, Other)
  Sender: FDA-Public Use
  Company Number: JP-BRISTOL-MYERS SQUIBB COMPANY-BMS-2020-021304

PATIENT
  Age: 67 Year
  Sex: Male
  Weight: 74 kg

DRUGS (13)
  1. ABRAXANE [Suspect]
     Active Substance: PACLITAXEL
     Indication: Gastric cancer
     Dosage: UNK
     Dates: start: 20200428
  2. OXALIPLATIN [Suspect]
     Active Substance: OXALIPLATIN
     Indication: Gastric cancer
     Route: 051
     Dates: start: 20200303
  3. OXALIPLATIN [Suspect]
     Active Substance: OXALIPLATIN
     Route: 051
     Dates: start: 20171221
  4. GIMERACIL\OTERACIL\TEGAFUR [Suspect]
     Active Substance: GIMERACIL\OTERACIL\TEGAFUR
     Indication: Gastric cancer
     Route: 048
     Dates: start: 20171221, end: 20200304
  5. RAMUCIRUMAB [Suspect]
     Active Substance: RAMUCIRUMAB
     Indication: Gastric cancer
     Dosage: UNK
     Dates: start: 20200428
  6. SODIUM FERROUS CITRATE [Concomitant]
     Active Substance: SODIUM FERROUS CITRATE
     Indication: Anaemia
     Dosage: 50 MILLIGRAM, Q12H
     Route: 048
     Dates: start: 20171216
  7. VONOPRAZAN FUMARATE [Concomitant]
     Active Substance: VONOPRAZAN FUMARATE
     Indication: Gastrointestinal disorder
     Dosage: 10 MILLIGRAM, QD
     Route: 048
     Dates: start: 20190703
  8. URSODIOL [Concomitant]
     Active Substance: URSODIOL
     Indication: Hepatobiliary disorder prophylaxis
     Dosage: 100 MILLIGRAM, Q8H
     Route: 048
     Dates: start: 20200128
  9. MAGNESIUM OXIDE [Concomitant]
     Active Substance: MAGNESIUM OXIDE
     Indication: Constipation
     Dosage: 330 MILLIGRAM, PRN
     Route: 048
     Dates: start: 20180216
  10. MIYA-BM [Concomitant]
     Active Substance: CLOSTRIDIUM BUTYRICUM SPORES STRAIN M-55
     Indication: Gastrointestinal disorder prophylaxis
     Dosage: 1 DOSAGE FORM, Q8H
     Route: 048
     Dates: start: 20200228
  11. HEPARINOID [Concomitant]
     Indication: Rash
     Dosage: CREAM, PRN
     Route: 003
     Dates: start: 20181204
  12. HEPARINOID [Concomitant]
     Indication: Dry skin
  13. DIFLUCORTOLONE VALERATE [Concomitant]
     Active Substance: DIFLUCORTOLONE VALERATE
     Indication: Rash
     Dosage: CREAM, PRN
     Route: 003
     Dates: start: 20190124

REACTIONS (2)
  - Platelet count decreased [Recovering/Resolving]
  - Febrile neutropenia [Recovered/Resolved]

NARRATIVE: CASE EVENT DATE: 20200305
